FAERS Safety Report 25508276 (Version 1)
Quarter: 2025Q3

REPORT INFORMATION
  Report Type: Spontaneous
  Country: US (occurrence: US)
  Receive Date: 20250703
  Receipt Date: 20250703
  Transmission Date: 20251021
  Serious: Yes (Hospitalization, Other)
  Sender: BIOGEN
  Company Number: US-BIOGENIDEC-2010BI023050

PATIENT
  Sex: Female
  Weight: 111.23 kg

DRUGS (6)
  1. TYSABRI [Suspect]
     Active Substance: NATALIZUMAB
     Indication: Multiple sclerosis
     Route: 050
     Dates: start: 20071001
  2. FUROSEMIDE [Concomitant]
     Active Substance: FUROSEMIDE
     Indication: Oedema peripheral
  3. URSO [Concomitant]
     Active Substance: URSODIOL
     Indication: Primary biliary cholangitis
     Dates: start: 2007
  4. NEURONTIN [Concomitant]
     Active Substance: GABAPENTIN
     Indication: Pain in extremity
     Dates: start: 1999
  5. CATAPRES-TTS [Concomitant]
     Active Substance: CLONIDINE
     Indication: Hyperhidrosis
     Route: 050
     Dates: start: 2007
  6. BACLOFEN [Concomitant]
     Active Substance: BACLOFEN
     Indication: Dyskinesia
     Route: 050
     Dates: start: 2002

REACTIONS (20)
  - Stress [Unknown]
  - Multiple sclerosis relapse [Unknown]
  - Diabetes mellitus [Unknown]
  - Fall [Recovered/Resolved]
  - Nasopharyngitis [Recovered/Resolved]
  - Stomatitis [Recovered/Resolved]
  - Tongue ulceration [Recovered/Resolved]
  - Nausea [Recovered/Resolved]
  - Headache [Recovered/Resolved]
  - Weight increased [Not Recovered/Not Resolved]
  - Gastrooesophageal reflux disease [Recovered/Resolved]
  - Colitis [Not Recovered/Not Resolved]
  - Diarrhoea [Recovered/Resolved]
  - Abdominal pain upper [Not Recovered/Not Resolved]
  - Dysphonia [Recovered/Resolved]
  - Multiple sclerosis [Unknown]
  - Osteoporosis [Unknown]
  - Sneezing [Unknown]
  - Nasal congestion [Not Recovered/Not Resolved]
  - Asthenia [Recovered/Resolved]

NARRATIVE: CASE EVENT DATE: 20070101
